FAERS Safety Report 4811706-4 (Version None)
Quarter: 2005Q4

REPORT INFORMATION
  Report Type: 
  Country: None (occurrence: None)
  Receive Date: 20051025
  Receipt Date: 20051017
  Transmission Date: 20060501
  Serious: Yes (Life-Threatening, Hospitalization, Disabling)
  Sender: FDA-Public Use
  Company Number: 2004200129FR

PATIENT
  Age: 45 Year
  Sex: Female
  Weight: 60 kg

DRUGS (3)
  1. SULFASALAZINE [Suspect]
     Indication: RHEUMATOID ARTHRITIS
     Dosage: 1000 MG (2 IN 1 D), ORAL
     Route: 048
     Dates: start: 20031127, end: 20031229
  2. PREDNISONE [Concomitant]
  3. OROCAL (CALCIUM CARBONATE) [Concomitant]

REACTIONS (27)
  - ANAEMIA [None]
  - BRAIN OEDEMA [None]
  - CHOLESTASIS [None]
  - COAGULOPATHY [None]
  - COMA HEPATIC [None]
  - CYTOLYTIC HEPATITIS [None]
  - ECZEMA [None]
  - HAEMORRHAGE [None]
  - HEADACHE [None]
  - HEPARIN-INDUCED THROMBOCYTOPENIA [None]
  - HEPATIC ENCEPHALOPATHY [None]
  - HEPATIC FAILURE [None]
  - HEPATIC NECROSIS [None]
  - HEPATITIS CHOLESTATIC [None]
  - HEPATITIS FULMINANT [None]
  - HEPATITIS TOXIC [None]
  - HEPATOCELLULAR DAMAGE [None]
  - LEUKOCYTOSIS [None]
  - MUSCULAR WEAKNESS [None]
  - PLEURAL EFFUSION [None]
  - POLYNEUROPATHY [None]
  - PURPURA [None]
  - PYELONEPHRITIS [None]
  - PYREXIA [None]
  - RASH MACULO-PAPULAR [None]
  - TACHYCARDIA [None]
  - TOXIC SKIN ERUPTION [None]
